FAERS Safety Report 18768591 (Version 1)
Quarter: 2021Q1

REPORT INFORMATION
  Report Type: Spontaneous
  Country: US (occurrence: US)
  Receive Date: 20210121
  Receipt Date: 20210121
  Transmission Date: 20210419
  Serious: No
  Sender: FDA-Public Use
  Company Number: US-ASTRAZENECA-2021A010266

PATIENT
  Age: 26460 Day
  Sex: Female
  Weight: 75.3 kg

DRUGS (1)
  1. BYDUREON BCISE [Suspect]
     Active Substance: EXENATIDE
     Indication: BLOOD GLUCOSE INCREASED
     Route: 065
     Dates: start: 20210106

REACTIONS (6)
  - Wrong technique in device usage process [Unknown]
  - Visual impairment [Unknown]
  - Blood glucose abnormal [Unknown]
  - Application site reaction [Unknown]
  - Intentional device misuse [Unknown]
  - Device issue [Unknown]

NARRATIVE: CASE EVENT DATE: 20210106
